FAERS Safety Report 6768504-4 (Version None)
Quarter: 2010Q2

REPORT INFORMATION
  Report Type: 
  Country: None (occurrence: None)
  Receive Date: 20100614
  Receipt Date: 20100602
  Transmission Date: 20101027
  Serious: Yes (Other)
  Sender: FDA-Public Use
  Company Number: US-PFIZER INC-2010069987

PATIENT
  Sex: Female
  Weight: 62.585 kg

DRUGS (4)
  1. CHANTIX [Suspect]
     Indication: SMOKING CESSATION THERAPY
     Dosage: 0.5 MG, 1X/DAY
     Route: 048
     Dates: start: 20100501
  2. LYRICA [Interacting]
     Indication: INTERVERTEBRAL DISC PROTRUSION
     Dosage: 75 MG, AS NEEDED
     Route: 048
     Dates: start: 20091101
  3. PERCOCET [Concomitant]
     Indication: PAIN
     Dosage: 5 MG, AS NEEDED
  4. TRANXENE [Concomitant]
     Dosage: UNK

REACTIONS (4)
  - CONFUSIONAL STATE [None]
  - DISORIENTATION [None]
  - DRUG INTERACTION [None]
  - MUSCULOSKELETAL DISCOMFORT [None]
